FAERS Safety Report 9859699 (Version 1)
Quarter: 2014Q1

REPORT INFORMATION
  Report Type: Spontaneous
  Country: FR (occurrence: FR)
  Receive Date: 20140131
  Receipt Date: 20140131
  Transmission Date: 20141002
  Serious: Yes (Hospitalization)
  Sender: FDA-Public Use
  Company Number: FR-WATSON-2013-24698

PATIENT
  Age: 85 Year
  Sex: Female

DRUGS (3)
  1. GABAPENTINE [Suspect]
     Indication: EPILEPSY
     Dosage: 900 MG, UNK
     Route: 048
     Dates: start: 20130712, end: 20130715
  2. GABAPENTINE [Suspect]
     Dosage: 300 MG, UNK
     Route: 048
     Dates: start: 20130711, end: 20130711
  3. RIVASTIGMINE [Concomitant]
     Indication: PRODUCT USED FOR UNKNOWN INDICATION
     Dosage: UNK, UNKNOWN
     Route: 062
     Dates: start: 20130711

REACTIONS (2)
  - Encephalopathy [Recovered/Resolved]
  - Hyperammonaemia [Recovering/Resolving]
